FAERS Safety Report 9563924 (Version 1)
Quarter: 2013Q3

REPORT INFORMATION
  Report Type: Spontaneous
  Country: CA (occurrence: CA)
  Receive Date: 20130928
  Receipt Date: 20130928
  Transmission Date: 20140515
  Serious: Yes (Hospitalization, Other)
  Sender: FDA-Public Use
  Company Number: CA-ROCHE-1279858

PATIENT
  Age: 48 Year
  Sex: Female
  Weight: 63 kg

DRUGS (13)
  1. PEGASYS [Suspect]
     Indication: PRODUCT USED FOR UNKNOWN INDICATION
     Dosage: THERAPY DURATION 15 DAYS
     Route: 065
  2. RIBAVIRIN [Suspect]
     Indication: PRODUCT USED FOR UNKNOWN INDICATION
     Dosage: THERAPY DURATION 15 DAYS
     Route: 065
  3. ALENDRONATE [Concomitant]
     Route: 065
  4. ARIPIPRAZOLE [Concomitant]
     Route: 065
  5. DICLECTIN [Concomitant]
     Route: 065
  6. FLUOXETINE [Concomitant]
     Route: 065
  7. METHADONE [Concomitant]
     Route: 065
  8. PANTOPRAZOLE [Concomitant]
     Route: 065
  9. PROPRANOLOL [Concomitant]
     Route: 065
  10. QUETIAPINE [Concomitant]
     Route: 065
  11. RANITIDINE [Concomitant]
     Route: 065
  12. VALACYCLOVIR [Concomitant]
     Route: 065
  13. WELLBUTRIN [Concomitant]
     Route: 065

REACTIONS (5)
  - Condition aggravated [Not Recovered/Not Resolved]
  - Decreased appetite [Not Recovered/Not Resolved]
  - Dyspnoea [Not Recovered/Not Resolved]
  - Productive cough [Not Recovered/Not Resolved]
  - Sputum discoloured [Not Recovered/Not Resolved]
